FAERS Safety Report 14534483 (Version 3)
Quarter: 2018Q3

REPORT INFORMATION
  Report Type: Spontaneous
  Country: US (occurrence: US)
  Receive Date: 20180215
  Receipt Date: 20180702
  Transmission Date: 20181010
  Serious: No
  Sender: FDA-Public Use
  Company Number: US-PFIZER INC-2017462569

PATIENT
  Age: 52 Year
  Sex: Female

DRUGS (18)
  1. FUROSEMIDE. [Concomitant]
     Active Substance: FUROSEMIDE
     Dosage: UNK
     Dates: start: 2005
  2. PARAPLATIN [Concomitant]
     Active Substance: CARBOPLATIN
     Indication: CHEMOTHERAPY
     Dosage: UNK
  3. NITROGLYCERIN. [Concomitant]
     Active Substance: NITROGLYCERIN
     Dosage: UNK
     Dates: start: 2005
  4. VITAMIN D3 [Concomitant]
     Active Substance: CHOLECALCIFEROL
     Dosage: UNK
     Dates: start: 2005
  5. COQ10 [Concomitant]
     Active Substance: UBIDECARENONE
     Dosage: UNK
     Dates: start: 2005
  6. DOCETAXEL. [Suspect]
     Active Substance: DOCETAXEL
     Indication: INVASIVE DUCTAL BREAST CARCINOMA
  7. TAXOTERE [Concomitant]
     Active Substance: DOCETAXEL
     Indication: CHEMOTHERAPY
     Dosage: UNK
  8. ASPIRIN. [Concomitant]
     Active Substance: ASPIRIN
     Dosage: UNK
     Dates: start: 201502
  9. OMEPRAZOLE. [Concomitant]
     Active Substance: OMEPRAZOLE
     Dosage: UNK
     Dates: start: 2011
  10. CYCLOBENZAPRINE. [Concomitant]
     Active Substance: CYCLOBENZAPRINE
     Dosage: UNK
     Dates: start: 2000
  11. HERCEPTIN [Concomitant]
     Active Substance: TRASTUZUMAB
     Indication: CHEMOTHERAPY
     Dosage: UNK
  12. DICYCLOMINE [Concomitant]
     Active Substance: DICYCLOMINE HYDROCHLORIDE
     Dosage: UNK
     Dates: start: 2011
  13. PROAIR HFA [Concomitant]
     Active Substance: ALBUTEROL SULFATE
     Dosage: UNK
     Dates: start: 2005
  14. MICRO?K [Concomitant]
     Active Substance: POTASSIUM CHLORIDE
     Dosage: UNK
     Dates: start: 2005
  15. DOCETAXEL. [Suspect]
     Active Substance: DOCETAXEL
     Indication: CHEMOTHERAPY
     Dosage: UNK UNK, EVERY 3 WEEKS (111 MG TO 148 MG, EVERY 3 WEEKS, FOUR CYCLES)
     Dates: start: 20150926, end: 20151228
  16. CARBOPLATIN. [Concomitant]
     Active Substance: CARBOPLATIN
     Indication: CHEMOTHERAPY
     Dosage: UNK
  17. ATENOLOL. [Concomitant]
     Active Substance: ATENOLOL
     Dosage: UNK
     Dates: start: 2005
  18. ADVAIR DISKUS [Concomitant]
     Active Substance: FLUTICASONE PROPIONATE\SALMETEROL XINAFOATE
     Dosage: UNK
     Dates: start: 2005

REACTIONS (5)
  - Hair texture abnormal [Not Recovered/Not Resolved]
  - Alopecia [Not Recovered/Not Resolved]
  - Madarosis [Not Recovered/Not Resolved]
  - Hair colour changes [Not Recovered/Not Resolved]
  - Hair disorder [Not Recovered/Not Resolved]

NARRATIVE: CASE EVENT DATE: 201511
